FAERS Safety Report 16609092 (Version 1)
Quarter: 2019Q3

REPORT INFORMATION
  Report Type: Spontaneous
  Country: US (occurrence: US)
  Receive Date: 20190720
  Receipt Date: 20190720
  Transmission Date: 20191004
  Serious: No
  Sender: FDA-Public Use
  Company Number: None

PATIENT
  Age: 66 Year
  Sex: Female
  Weight: 72 kg

DRUGS (9)
  1. SYNTHROID [Concomitant]
     Active Substance: LEVOTHYROXINE SODIUM
  2. RANITIDINE. [Concomitant]
     Active Substance: RANITIDINE
  3. VENLAFAXINE HCL [Concomitant]
     Active Substance: VENLAFAXINE HYDROCHLORIDE
  4. VENLAFAXINE HYDROCHLORIDE EXTENDED RELEASE CAPSULES USP 150 MG [Suspect]
     Active Substance: VENLAFAXINE HYDROCHLORIDE
     Indication: DEPRESSION
     Dosage: ?          QUANTITY:1 CAPSULE(S);?
     Route: 048
     Dates: start: 20190718, end: 20190719
  5. RALOXIFENE HCL [Concomitant]
     Active Substance: RALOXIFENE
  6. ASPIRIN. [Concomitant]
     Active Substance: ASPIRIN
  7. VENLAFAXINE HYDROCHLORIDE EXTENDED RELEASE CAPSULES USP 150 MG [Suspect]
     Active Substance: VENLAFAXINE HYDROCHLORIDE
     Indication: MENOPAUSAL SYMPTOMS
     Dosage: ?          QUANTITY:1 CAPSULE(S);?
     Route: 048
     Dates: start: 20190718, end: 20190719
  8. ATORVASTATIN [Concomitant]
     Active Substance: ATORVASTATIN
  9. OMEPRAZOLE. [Concomitant]
     Active Substance: OMEPRAZOLE

REACTIONS (7)
  - Night sweats [None]
  - Fatigue [None]
  - Product substitution issue [None]
  - Headache [None]
  - Abnormal dreams [None]
  - Product quality issue [None]
  - Insomnia [None]

NARRATIVE: CASE EVENT DATE: 20190718
